FAERS Safety Report 17906508 (Version 2)
Quarter: 2022Q2

REPORT INFORMATION
  Report Type: Spontaneous
  Country: US (occurrence: None)
  Receive Date: 20200616
  Receipt Date: 20220609
  Transmission Date: 20220721
  Serious: No
  Sender: FDA-Public Use
  Company Number: US-ROCHE-2521515

PATIENT
  Sex: Female

DRUGS (20)
  1. ACTEMRA [Suspect]
     Active Substance: TOCILIZUMAB
     Indication: Rheumatoid arthritis
     Dosage: 162 MG/ML
     Route: 058
  2. ACTEMRA [Suspect]
     Active Substance: TOCILIZUMAB
  3. ACTEMRA [Suspect]
     Active Substance: TOCILIZUMAB
  4. APIDRA [Concomitant]
     Active Substance: INSULIN GLULISINE
     Dosage: SOL 100 UNIT/ML
  5. BIOTIN [Concomitant]
     Active Substance: BIOTIN
  6. MAGNESIUM [Concomitant]
     Active Substance: MAGNESIUM
  7. LANTUS [Concomitant]
     Active Substance: INSULIN GLARGINE
     Dosage: 100/ML
  8. VICTOZA [Concomitant]
     Active Substance: LIRAGLUTIDE
     Dosage: 18MG/3ML
  9. ALPRAZOLAM [Concomitant]
     Active Substance: ALPRAZOLAM
  10. METOPROLOL [Concomitant]
     Active Substance: METOPROLOL
  11. PREMARIN [Concomitant]
     Active Substance: ESTROGENS, CONJUGATED
  12. MONTELUKAST [Concomitant]
     Active Substance: MONTELUKAST SODIUM
  13. ZOLPIDEM [Concomitant]
     Active Substance: ZOLPIDEM TARTRATE
  14. TIZANIDINE [Concomitant]
     Active Substance: TIZANIDINE
  15. VOLTAREN [Concomitant]
     Active Substance: DICLOFENAC SODIUM
  16. LEVOTHYROXINE [Concomitant]
     Active Substance: LEVOTHYROXINE
  17. METOPROLOL TARTRATE [Concomitant]
     Active Substance: METOPROLOL TARTRATE
  18. RIZATRIPTAN [Concomitant]
     Active Substance: RIZATRIPTAN
  19. ONDANSETRON [Concomitant]
     Active Substance: ONDANSETRON
  20. HYDROCODONE [Concomitant]
     Active Substance: HYDROCODONE
     Dosage: 10-325 MG

REACTIONS (2)
  - Malaise [Not Recovered/Not Resolved]
  - Malaise [Unknown]
